FAERS Safety Report 20347501 (Version 1)
Quarter: 2022Q1

REPORT INFORMATION
  Report Type: Spontaneous
  Country: US (occurrence: None)
  Receive Date: 20220118
  Receipt Date: 20220118
  Transmission Date: 20220423
  Serious: Yes (Hospitalization, Other)
  Sender: FDA-Public Use
  Company Number: None

PATIENT
  Sex: Male

DRUGS (1)
  1. IMATINIB MESYLATE [Suspect]
     Active Substance: IMATINIB MESYLATE
     Indication: Chronic myeloid leukaemia
     Dosage: FREQUENCY : DAILY;?
     Route: 048
     Dates: start: 20190402

REACTIONS (8)
  - Urinary tract infection [None]
  - Kidney infection [None]
  - Prostate cancer [None]
  - Diverticulitis [None]
  - Nausea [None]
  - Diarrhoea [None]
  - Asthenia [None]
  - Vomiting [None]
